FAERS Safety Report 8852502 (Version 1)
Quarter: 2012Q4

REPORT INFORMATION
  Report Type: 
  Country: FR (occurrence: FR)
  Receive Date: 20121022
  Receipt Date: 20121022
  Transmission Date: 20130627
  Serious: Yes (Other)
  Sender: FDA-Public Use
  Company Number: FR-BRISTOL-MYERS SQUIBB COMPANY-16954257

PATIENT
  Age: 30 Year
  Sex: Male

DRUGS (6)
  1. ABILIFY [Suspect]
     Indication: SCHIZOPHRENIA
     Route: 048
     Dates: start: 201203, end: 20120818
  2. LEXOMIL [Concomitant]
  3. PAROXETINE [Concomitant]
  4. STILNOX [Concomitant]
  5. PARKINANE [Concomitant]
  6. SULFARLEM [Concomitant]

REACTIONS (1)
  - Dysuria [Recovered/Resolved]
